FAERS Safety Report 5221622-4 (Version None)
Quarter: 2007Q1

REPORT INFORMATION
  Report Type: 
  Country: None (occurrence: None)
  Receive Date: 20070129
  Receipt Date: 20070119
  Transmission Date: 20070707
  Serious: Yes (Hospitalization)
  Sender: FDA-Public Use
  Company Number: DE-BRACCO-BRO-011094

PATIENT
  Sex: Male

DRUGS (1)
  1. MULTIHANCE [Suspect]
     Route: 042
     Dates: start: 20061205, end: 20061205

REACTIONS (1)
  - CIRCULATORY COLLAPSE [None]
